FAERS Safety Report 21840392 (Version 2)
Quarter: 2023Q1

REPORT INFORMATION
  Report Type: Report from Study
  Country: US (occurrence: US)
  Receive Date: 20230110
  Receipt Date: 20230217
  Transmission Date: 20230418
  Serious: No
  Sender: FDA-Public Use
  Company Number: US-ABBVIE-4263398

PATIENT
  Age: 70 Year
  Sex: Female

DRUGS (9)
  1. VENCLEXTA [Suspect]
     Active Substance: VENETOCLAX
     Indication: Chronic lymphocytic leukaemia
     Route: 048
     Dates: start: 20221102
  2. ALLOPURINOL [Concomitant]
     Active Substance: ALLOPURINOL
     Indication: Product used for unknown indication
  3. OMEGA 3 [Concomitant]
     Active Substance: CAPSAICIN
     Indication: Product used for unknown indication
  4. SERTRALINE HYDROCHLORIDE [Concomitant]
     Active Substance: SERTRALINE HYDROCHLORIDE
     Indication: Product used for unknown indication
     Route: 048
  5. CALCIUM ACETATE [Concomitant]
     Active Substance: CALCIUM ACETATE
     Indication: Product used for unknown indication
  6. METRONIDAZOLE [Concomitant]
     Active Substance: METRONIDAZOLE
     Indication: Product used for unknown indication
  7. GASTROGRAFIN [Concomitant]
     Active Substance: DIATRIZOATE MEGLUMINE\DIATRIZOATE SODIUM
     Indication: Product used for unknown indication
     Dosage: 66-10 %
     Route: 048
  8. METOPROLOL SUCCINATE [Concomitant]
     Active Substance: METOPROLOL SUCCINATE
     Indication: Product used for unknown indication
     Dosage: EXTENDED RELEASE
     Route: 048
  9. LATANOPROST [Concomitant]
     Active Substance: LATANOPROST
     Indication: Product used for unknown indication
     Dosage: OPHTHALMIC SOLUTION 0.0

REACTIONS (1)
  - Neutropenia [Recovering/Resolving]

NARRATIVE: CASE EVENT DATE: 20221229
